FAERS Safety Report 25373476 (Version 3)
Quarter: 2025Q4

REPORT INFORMATION
  Report Type: Spontaneous
  Country: US (occurrence: US)
  Receive Date: 20250529
  Receipt Date: 20251003
  Transmission Date: 20260117
  Serious: Yes (Hospitalization)
  Sender: CIPLA
  Company Number: US-CIPLA LTD.-2024US11604

PATIENT

DRUGS (5)
  1. ALBUTEROL [Suspect]
     Active Substance: ALBUTEROL
     Indication: Product used for unknown indication
     Dosage: UNK
     Dates: start: 2021
  2. ALBUTEROL [Suspect]
     Active Substance: ALBUTEROL
     Dosage: 180 MICROGRAM (2 PUFFS A DAY, IF REQUIRE THE PATIENT TAKES 2 MORE AT BEDTIME)
  3. ALBUTEROL [Suspect]
     Active Substance: ALBUTEROL
     Dosage: 180 MICROGRAM (2 PUFFS A DAY, IF REQUIRE THE PATIENT TAKES 2 MORE AT BEDTIME)
  4. ALBUTEROL [Suspect]
     Active Substance: ALBUTEROL
     Dosage: 180 MICROGRAM (2 PUFFS A DAY, IF REQUIRE THE PATIENT TAKES 2 MORE AT BEDTIME)
  5. ALBUTEROL [Suspect]
     Active Substance: ALBUTEROL
     Dosage: 180 MICROGRAM, QD (2 PUFFS AT NIGHT BEFORE GOING TO BED)
     Dates: start: 2025

REACTIONS (8)
  - Dyspnoea [Unknown]
  - Wrong technique in product usage process [Unknown]
  - Drug ineffective [Unknown]
  - Drug dose omission by device [Unknown]
  - Product substitution issue [Unknown]
  - Device defective [Unknown]
  - Device mechanical issue [Unknown]
  - Device delivery system issue [Unknown]

NARRATIVE: CASE EVENT DATE: 20250701
